FAERS Safety Report 18830022 (Version 1)
Quarter: 2021Q1

REPORT INFORMATION
  Report Type: Spontaneous
  Country: US (occurrence: US)
  Receive Date: 20210202
  Receipt Date: 20210202
  Transmission Date: 20210419
  Serious: Yes (Hospitalization)
  Sender: FDA-Public Use
  Company Number: None

PATIENT
  Age: 69 Year
  Sex: Female
  Weight: 75.9 kg

DRUGS (1)
  1. PACLITAXEL (TAXOL) (673089) [Suspect]
     Active Substance: PACLITAXEL
     Indication: PRODUCT USED FOR UNKNOWN INDICATION
     Dates: end: 20210120

REACTIONS (5)
  - Abdominal strangulated hernia [None]
  - Tenderness [None]
  - Large intestine operation [None]
  - Abdominal hernia perforation [None]
  - Abdominal pain [None]

NARRATIVE: CASE EVENT DATE: 20210124
